FAERS Safety Report 10018040 (Version 2)
Quarter: 2014Q1

REPORT INFORMATION
  Report Type: Spontaneous
  Country: US (occurrence: US)
  Receive Date: 20140318
  Receipt Date: 20140318
  Transmission Date: 20141002
  Serious: No
  Sender: FDA-Public Use
  Company Number: US-BRISTOL-MYERS SQUIBB COMPANY-18891069

PATIENT
  Age: 63 Year
  Sex: Male
  Weight: 72.56 kg

DRUGS (4)
  1. ERBITUX [Suspect]
     Indication: COLON CANCER METASTATIC
     Dosage: LAST DOSE:07MAY2013?NO OF TREATMENTS:12
     Dates: start: 20130119
  2. FLUOROURACIL [Concomitant]
  3. LEUCOVORIN [Concomitant]
  4. IRINOTECAN [Concomitant]

REACTIONS (3)
  - Skin toxicity [Unknown]
  - Weight increased [Unknown]
  - Hypomagnesaemia [Unknown]
